FAERS Safety Report 24221624 (Version 2)
Quarter: 2024Q3

REPORT INFORMATION
  Report Type: Spontaneous
  Country: US (occurrence: US)
  Receive Date: 20240819
  Receipt Date: 20240924
  Transmission Date: 20241017
  Serious: No
  Sender: ABBVIE
  Company Number: US-ABBVIE-5883690

PATIENT
  Sex: Male

DRUGS (2)
  1. FML [Suspect]
     Active Substance: FLUOROMETHOLONE
     Indication: Product used for unknown indication
     Route: 047
     Dates: start: 20240615
  2. FML [Suspect]
     Active Substance: FLUOROMETHOLONE
     Route: 047

REACTIONS (1)
  - Incorrect dose administered [Unknown]
